FAERS Safety Report 5517159-5 (Version None)
Quarter: 2007Q4

REPORT INFORMATION
  Report Type: 
  Country: None (occurrence: None)
  Receive Date: 20071114
  Receipt Date: 20071107
  Transmission Date: 20080405
  Serious: Yes (Other)
  Sender: FDA-Public Use
  Company Number: D0054840A

PATIENT
  Age: 49 Year
  Sex: Female
  Weight: 90 kg

DRUGS (4)
  1. REQUIP [Suspect]
     Indication: PARKINSONISM
     Dosage: 2MG THREE TIMES PER DAY
     Route: 048
  2. BETA BLOCKER [Concomitant]
     Route: 065
     Dates: start: 20050101
  3. LEVODOPA [Concomitant]
     Indication: PARKINSONISM
     Route: 065
  4. LEVOPAR [Concomitant]
     Indication: PARKINSONISM
     Route: 065

REACTIONS (4)
  - ANXIETY [None]
  - ARRHYTHMIA [None]
  - CHEST PAIN [None]
  - TACHYCARDIA [None]
